FAERS Safety Report 5930530-2 (Version None)
Quarter: 2008Q4

REPORT INFORMATION
  Report Type: 
  Country: None (occurrence: None)
  Receive Date: 20081026
  Receipt Date: 20081021
  Transmission Date: 20090506
  Serious: Yes (Death, Other)
  Sender: FDA-Public Use
  Company Number: PHHY2008GB23317

PATIENT
  Sex: Male

DRUGS (2)
  1. CLOZARIL [Suspect]
     Indication: SCHIZOPHRENIA
     Dosage: UNK
     Dates: start: 20020410
  2. SINEMET [Concomitant]
     Indication: PARKINSON'S DISEASE
     Dosage: 3 AND 1/2 TABLETS DAILY
     Route: 048

REACTIONS (9)
  - ACTIVITIES OF DAILY LIVING IMPAIRED [None]
  - CONSTIPATION [None]
  - DEATH [None]
  - FALL [None]
  - FREEZING PHENOMENON [None]
  - GENERAL PHYSICAL HEALTH DETERIORATION [None]
  - PARKINSON'S DISEASE [None]
  - SPEECH DISORDER [None]
  - WEIGHT DECREASED [None]
